FAERS Safety Report 4706663-5 (Version None)
Quarter: 2005Q3

REPORT INFORMATION
  Report Type: 
  Country: None (occurrence: None)
  Receive Date: 20050705
  Receipt Date: 20050627
  Transmission Date: 20060218
  Serious: Yes (Hospitalization)
  Sender: FDA-Public Use
  Company Number: FR-ROCHE-409021

PATIENT
  Age: 63 Year
  Sex: Female

DRUGS (8)
  1. CELLCEPT [Suspect]
     Indication: PROPHYLAXIS AGAINST TRANSPLANT REJECTION
     Route: 048
     Dates: start: 20030615
  2. PROGRAF [Suspect]
     Indication: DRUG USE FOR UNKNOWN INDICATION
     Route: 048
     Dates: start: 20030615
  3. ROCALTROL [Concomitant]
  4. ACTONEL [Concomitant]
  5. VASTEN [Concomitant]
  6. COZAAR [Concomitant]
  7. DIAMICRON [Concomitant]
  8. ACTOS [Concomitant]

REACTIONS (4)
  - COMA [None]
  - CONVULSION [None]
  - DRUG LEVEL INCREASED [None]
  - GRAND MAL CONVULSION [None]
